FAERS Safety Report 18534894 (Version 2)
Quarter: 2020Q4

REPORT INFORMATION
  Report Type: Report from Study
  Country: US (occurrence: US)
  Receive Date: 20201123
  Receipt Date: 20201228
  Transmission Date: 20210114
  Serious: Yes (Other)
  Sender: FDA-Public Use
  Company Number: NVSC2020US310373

PATIENT
  Age: 62 Year

DRUGS (3)
  1. DONOR LYMPHOCYTE INFUSION [Concomitant]
     Active Substance: LYMPHOCYTES
     Indication: ACUTE MYELOID LEUKAEMIA
     Dosage: UNK
     Route: 042
     Dates: start: 20201026
  2. INC424A [Suspect]
     Active Substance: RUXOLITINIB
     Indication: ACUTE MYELOID LEUKAEMIA
     Dosage: 5 MG, BID
     Route: 048
     Dates: start: 20200916
  3. DECITABINE. [Suspect]
     Active Substance: DECITABINE
     Indication: ACUTE MYELOID LEUKAEMIA
     Dosage: 50 MG/M2
     Route: 042
     Dates: start: 20201014

REACTIONS (1)
  - Encephalopathy [Recovered/Resolved]

NARRATIVE: CASE EVENT DATE: 20201102
